FAERS Safety Report 8872621 (Version 5)
Quarter: 2013Q3

REPORT INFORMATION
  Report Type: Report from Study
  Country: US (occurrence: US)
  Receive Date: 20121029
  Receipt Date: 20130825
  Transmission Date: 20140515
  Serious: Yes (Hospitalization)
  Sender: FDA-Public Use
  Company Number: PHHO2012US015073

PATIENT
  Age: 64 Year
  Sex: Female
  Weight: 71.65 kg

DRUGS (13)
  1. ATENOLOL [Suspect]
     Indication: HYPERTENSION
     Dosage: 25 MG, QD
     Route: 065
     Dates: start: 20101027, end: 20121010
  2. ATENOLOL [Suspect]
     Dosage: 12.5 MG, QD
     Route: 065
     Dates: start: 20121011, end: 20121013
  3. ATENOLOL [Suspect]
     Dosage: 25 MG, QD
     Route: 065
     Dates: start: 20121014
  4. NO TREATMENT RECEIVED [Suspect]
     Indication: PANCREATIC CARCINOMA
     Dosage: NO TREATMENT
  5. TOLTERODINE TARTRATE [Concomitant]
  6. PANCRELIPASE [Concomitant]
  7. LEVOTHYROXINE [Concomitant]
  8. MULTIVITAMINS [Concomitant]
  9. PROCHLORPERAZINE [Concomitant]
  10. FENTANYL CITRATE [Concomitant]
  11. FOLIC ACID [Concomitant]
  12. IRON [Concomitant]
  13. VICODIN [Concomitant]

REACTIONS (4)
  - Hyperkalaemia [Recovered/Resolved]
  - Renal failure chronic [Recovering/Resolving]
  - Renal failure acute [Recovering/Resolving]
  - Venous thrombosis [Recovering/Resolving]
